FAERS Safety Report 8511118-6 (Version None)
Quarter: 2012Q3

REPORT INFORMATION
  Report Type: 
  Country: None (occurrence: None)
  Receive Date: 20120716
  Receipt Date: 20120709
  Transmission Date: 20120928
  Serious: Yes (Death)
  Sender: FDA-Public Use
  Company Number: US-JNJFOC-20120613909

PATIENT
  Age: 7 Year
  Sex: Female

DRUGS (10)
  1. RADIATION THERAPY NOS [Suspect]
     Indication: ACUTE LYMPHOCYTIC LEUKAEMIA
     Dosage: 24GY
     Route: 065
  2. PREDNISONE [Suspect]
     Indication: ACUTE LYMPHOCYTIC LEUKAEMIA
     Route: 065
  3. DOXORUBICIN HCL [Suspect]
     Indication: ACUTE LYMPHOCYTIC LEUKAEMIA
     Dosage: CUMULATIVE DOSE 465 MG/M2
     Route: 042
  4. MERCAPTOPURINE [Suspect]
     Indication: ACUTE LYMPHOCYTIC LEUKAEMIA
     Route: 065
  5. METHOTREXATE [Suspect]
     Indication: ACUTE LYMPHOCYTIC LEUKAEMIA
     Route: 065
  6. METHOTREXATE [Suspect]
     Route: 037
  7. DOXORUBICIN HCL [Suspect]
     Dosage: CUMULATIVE DOSE 465 MG/M2
     Route: 042
  8. ASPARAGINASE [Suspect]
     Indication: ACUTE LYMPHOCYTIC LEUKAEMIA
     Route: 065
  9. DOXORUBICIN HCL [Suspect]
     Route: 042
  10. VINCRISTINE [Suspect]
     Indication: ACUTE LYMPHOCYTIC LEUKAEMIA
     Route: 065

REACTIONS (5)
  - CHEMOTHERAPY [None]
  - CARDIOTOXICITY [None]
  - CONGESTIVE CARDIOMYOPATHY [None]
  - CARDIAC FAILURE [None]
  - SUDDEN CARDIAC DEATH [None]
